FAERS Safety Report 23080331 (Version 2)
Quarter: 2024Q1

REPORT INFORMATION
  Report Type: Report from Study
  Country: DE (occurrence: DE)
  Receive Date: 20231018
  Receipt Date: 20240216
  Transmission Date: 20240410
  Serious: Yes (Other)
  Sender: FDA-Public Use
  Company Number: DE-002147023-NVSC2023DE047591

PATIENT
  Age: 5 Year
  Sex: Male
  Weight: 17.3 kg

DRUGS (8)
  1. ILARIS [Suspect]
     Active Substance: CANAKINUMAB
     Indication: Familial mediterranean fever
     Dosage: 68 MG
     Route: 058
     Dates: start: 20220531
  2. ILARIS [Suspect]
     Active Substance: CANAKINUMAB
     Dosage: UNK
     Route: 065
     Dates: start: 20230307
  3. ILARIS [Suspect]
     Active Substance: CANAKINUMAB
     Dosage: 68 MG
     Route: 058
     Dates: start: 20230601
  4. ILARIS [Suspect]
     Active Substance: CANAKINUMAB
     Dosage: 68 MG
     Route: 058
     Dates: start: 20230601
  5. ILARIS [Suspect]
     Active Substance: CANAKINUMAB
     Dosage: 68 MG
     Route: 058
     Dates: start: 20230725
  6. COLCHICINE [Concomitant]
     Active Substance: COLCHICINE
     Indication: Product used for unknown indication
     Dosage: 0.5 MG, QD
     Route: 065
  7. COLCHICINE [Concomitant]
     Active Substance: COLCHICINE
     Dosage: 1 MG, QD
     Route: 065
  8. ALBUTEROL [Concomitant]
     Active Substance: ALBUTEROL
     Indication: Product used for unknown indication
     Dosage: UNK, QD (3X PUFFS)
     Route: 065
     Dates: start: 20230327

REACTIONS (10)
  - Cellulitis [Unknown]
  - Pyrexia [Recovered/Resolved]
  - Diarrhoea [Recovered/Resolved]
  - Diarrhoea [Recovered/Resolved]
  - Pyrexia [Recovered/Resolved]
  - Nasopharyngitis [Unknown]
  - Cough [Unknown]
  - Abdominal pain [Recovered/Resolved]
  - Tonsillitis bacterial [Recovered/Resolved]
  - Pharyngeal erythema [Recovered/Resolved]

NARRATIVE: CASE EVENT DATE: 20220915
